FAERS Safety Report 7669894-0 (Version None)
Quarter: 2011Q3

REPORT INFORMATION
  Report Type: 
  Country: None (occurrence: None)
  Receive Date: 20110808
  Receipt Date: 20110726
  Transmission Date: 20111222
  Serious: Yes (Hospitalization, Disabling, Other)
  Sender: FDA-Public Use
  Company Number: PHHY2011FR55450

PATIENT
  Sex: Female
  Weight: 63.8 kg

DRUGS (13)
  1. CLARITHROMYCIN [Concomitant]
     Dosage: UNK UKN, BID
  2. CLAFORAN [Concomitant]
     Dosage: 4 DF, DAILY
  3. PREDNISONE [Concomitant]
     Dosage: UNK UKN, UNK
     Route: 048
  4. ASPIRIN [Concomitant]
     Dosage: UNK UKN, UNK
     Route: 048
  5. LASIX [Concomitant]
     Dosage: UNK UKN, QD
  6. OXYGEN THERAPY [Concomitant]
     Dosage: UNK UKN, UNK
  7. BISOPROLOL FUMARATE [Concomitant]
     Dosage: UNK UKN, QD
     Route: 048
  8. IMURAN [Concomitant]
     Dosage: UNK UKN, UNK
  9. CALCIUM D3 [Concomitant]
     Dosage: 500 MG, BID
     Route: 048
  10. LEXOMIL [Concomitant]
     Dosage: 05 DF, TID
     Route: 048
  11. GLEEVEC [Suspect]
     Indication: CHRONIC MYELOID LEUKAEMIA
     Dosage: 400 MG, DAILY
     Route: 048
     Dates: start: 20100820, end: 20110410
  12. LEVOTHYROXINE SODIUM [Concomitant]
     Indication: HYPOTHYROIDISM
     Dosage: UNK UKN, QD
  13. NEXIUM [Concomitant]
     Dosage: UNK UKN, QD

REACTIONS (20)
  - HYPOTENSION [None]
  - DYSAESTHESIA [None]
  - PERIPHERAL MOTOR NEUROPATHY [None]
  - GAMMA-GLUTAMYLTRANSFERASE INCREASED [None]
  - POLYNEUROPATHY [None]
  - DYSSTASIA [None]
  - DYSPNOEA [None]
  - HYPOXIA [None]
  - BALANCE DISORDER [None]
  - OEDEMA PERIPHERAL [None]
  - HYPOAESTHESIA [None]
  - AXONAL NEUROPATHY [None]
  - MYALGIA [None]
  - MUSCULOSKELETAL PAIN [None]
  - ANAEMIA MACROCYTIC [None]
  - PYREXIA [None]
  - HYPOREFLEXIA [None]
  - PARAESTHESIA [None]
  - MUSCLE SPASMS [None]
  - MUSCLE FATIGUE [None]
